FAERS Safety Report 12920990 (Version 1)
Quarter: 2016Q4

REPORT INFORMATION
  Report Type: Spontaneous
  Country: US (occurrence: US)
  Receive Date: 20161107
  Receipt Date: 20161107
  Transmission Date: 20170207
  Serious: Yes (Hospitalization)
  Sender: FDA-Public Use
  Company Number: None

PATIENT
  Age: 70 Year
  Sex: Male
  Weight: 77.3 kg

DRUGS (1)
  1. METHAZOLAMIDE. [Suspect]
     Active Substance: METHAZOLAMIDE
     Indication: GLAUCOMA
     Route: 048
     Dates: start: 20160603, end: 20160714

REACTIONS (1)
  - Anaemia [None]

NARRATIVE: CASE EVENT DATE: 20160428
